FAERS Safety Report 6945182-2 (Version None)
Quarter: 2010Q3

REPORT INFORMATION
  Report Type: 
  Country: None (occurrence: None)
  Receive Date: 20100827
  Receipt Date: 20100521
  Transmission Date: 20110219
  Serious: No
  Sender: FDA-Public Use
  Company Number: US-KINGPHARMUSA00001-K201000648

PATIENT
  Sex: Female
  Weight: 65.76 kg

DRUGS (6)
  1. FLECTOR [Suspect]
     Indication: PERIARTHRITIS
     Dosage: 1 OR 2 HALF PATCHES
     Route: 061
     Dates: start: 20091201, end: 20100501
  2. ALLEGRA D 24 HOUR [Concomitant]
     Indication: SEASONAL ALLERGY
     Dosage: UNK
  3. SINGULAIR [Concomitant]
     Indication: SEASONAL ALLERGY
     Dosage: UNK
  4. LEVOXYL [Concomitant]
     Indication: HYPOTHYROIDISM
     Dosage: UNK
  5. TOPAMAX [Concomitant]
     Indication: MIGRAINE
     Dosage: UNK
  6. ATENOLOL [Concomitant]
     Indication: ARRHYTHMIA
     Dosage: UNK

REACTIONS (7)
  - APPLICATION SITE ERYTHEMA [None]
  - APPLICATION SITE HYPERSENSITIVITY [None]
  - APPLICATION SITE INFECTION [None]
  - APPLICATION SITE PRURITUS [None]
  - APPLICATION SITE SWELLING [None]
  - APPLICATION SITE VESICLES [None]
  - STAPHYLOCOCCAL SKIN INFECTION [None]
